FAERS Safety Report 18769399 (Version 6)
Quarter: 2021Q2

REPORT INFORMATION
  Report Type: Spontaneous
  Country: CZ (occurrence: CZ)
  Receive Date: 20210121
  Receipt Date: 20210402
  Transmission Date: 20210717
  Serious: Yes (Other)
  Sender: FDA-Public Use
  Company Number: NVSC2021CZ012290

PATIENT
  Age: 74 Year
  Sex: Female

DRUGS (4)
  1. IBUPROFEN. [Concomitant]
     Active Substance: IBUPROFEN
     Indication: BACK PAIN
     Dosage: 400 MG (ON DEMAND)
     Route: 065
     Dates: start: 1988
  2. DICLOFENAC [Suspect]
     Active Substance: DICLOFENAC
     Indication: BACK PAIN
     Dosage: 75 MG
     Route: 065
     Dates: start: 1988, end: 2013
  3. CELECOXIB. [Concomitant]
     Active Substance: CELECOXIB
     Indication: BACK PAIN
     Dosage: UNK
     Route: 065
     Dates: end: 2017
  4. NIMESULIDE [Suspect]
     Active Substance: NIMESULIDE
     Indication: BACK PAIN
     Dosage: UNK, QD LONG?TERM USE OF NSAIDS
     Route: 065
     Dates: end: 2013

REACTIONS (3)
  - Gastrointestinal haemorrhage [Unknown]
  - Contraindicated product administered [Unknown]
  - Functional gastrointestinal disorder [Unknown]

NARRATIVE: CASE EVENT DATE: 2013
